FAERS Safety Report 13497114 (Version 1)
Quarter: 2017Q2

REPORT INFORMATION
  Report Type: Spontaneous
  Country: IR (occurrence: IR)
  Receive Date: 20170428
  Receipt Date: 20170428
  Transmission Date: 20170830
  Serious: Yes (Death, Hospitalization, Other)
  Sender: FDA-Public Use
  Company Number: IR-JNJFOC-20170428470

PATIENT

DRUGS (6)
  1. CODEINE [Suspect]
     Active Substance: CODEINE
     Indication: PRODUCT USED FOR UNKNOWN INDICATION
     Route: 065
  2. DIPHENOXYLATE [Suspect]
     Active Substance: DIPHENOXYLATE
     Indication: PRODUCT USED FOR UNKNOWN INDICATION
     Route: 065
  3. METHADONE [Suspect]
     Active Substance: METHADONE HYDROCHLORIDE
     Indication: PRODUCT USED FOR UNKNOWN INDICATION
     Route: 065
  4. BUPRENORPHINE. [Suspect]
     Active Substance: BUPRENORPHINE
     Indication: PRODUCT USED FOR UNKNOWN INDICATION
     Route: 065
  5. TRAMADOL. [Suspect]
     Active Substance: TRAMADOL
     Indication: PRODUCT USED FOR UNKNOWN INDICATION
     Route: 065
  6. MORPHINE [Suspect]
     Active Substance: MORPHINE
     Indication: PRODUCT USED FOR UNKNOWN INDICATION
     Route: 065

REACTIONS (19)
  - Accidental exposure to product [Unknown]
  - Blood gases abnormal [Unknown]
  - Hypernatraemia [Unknown]
  - Somnolence [Unknown]
  - Seizure [Unknown]
  - Poisoning [Unknown]
  - Loss of consciousness [Unknown]
  - Blood electrolytes abnormal [Unknown]
  - Electrocardiogram QT prolonged [Unknown]
  - Miosis [Unknown]
  - Bradypnoea [Unknown]
  - Oxygen saturation decreased [Unknown]
  - Hyponatraemia [Unknown]
  - Toxicity to various agents [Fatal]
  - Hyperglycaemia [Unknown]
  - Respiratory acidosis [Unknown]
  - Leukocytosis [Unknown]
  - Wrong drug administered [Unknown]
  - Apnoea [Unknown]
